FAERS Safety Report 19005567 (Version 1)
Quarter: 2021Q1

REPORT INFORMATION
  Report Type: Report from Study
  Country: US (occurrence: US)
  Receive Date: 20210313
  Receipt Date: 20210313
  Transmission Date: 20210420
  Serious: Yes (Death, Life-Threatening, Other)
  Sender: FDA-Public Use
  Company Number: NVSC2021US055014

PATIENT
  Age: 73 Year
  Sex: Female

DRUGS (2)
  1. BENDAMUSTINE [Concomitant]
     Active Substance: BENDAMUSTINE
     Indication: CHEMOTHERAPY
     Dosage: UNK
     Route: 065
  2. KYMRIAH [Suspect]
     Active Substance: TISAGENLECLEUCEL
     Indication: DIFFUSE LARGE B-CELL LYMPHOMA
     Dosage: UNK, ONCE/SINGLE
     Route: 041
     Dates: start: 20200310

REACTIONS (19)
  - Malignant neoplasm progression [Fatal]
  - Pyrexia [Fatal]
  - Cytopenia [Unknown]
  - Depressed level of consciousness [Unknown]
  - Neutrophil count increased [Unknown]
  - Diffuse large B-cell lymphoma [Fatal]
  - Hypoxia [Fatal]
  - Haemoglobin decreased [Unknown]
  - White blood cell count increased [Unknown]
  - Diffuse large B-cell lymphoma recurrent [Fatal]
  - Hypotension [Fatal]
  - Cytokine release syndrome [Fatal]
  - Hallucination [Unknown]
  - Neutropenia [Not Recovered/Not Resolved]
  - Haematocrit decreased [Unknown]
  - Lymphocyte count decreased [Unknown]
  - Thrombocytopenia [Not Recovered/Not Resolved]
  - Neurotoxicity [Not Recovered/Not Resolved]
  - Confusional state [Unknown]
